FAERS Safety Report 9370248 (Version 2)
Quarter: 2013Q4

REPORT INFORMATION
  Report Type: Report from Study
  Country: CA (occurrence: CA)
  Receive Date: 20130626
  Receipt Date: 20131015
  Transmission Date: 20140711
  Serious: Yes (Other)
  Sender: FDA-Public Use
  Company Number: CA-JNJFOC-20130614146

PATIENT
  Age: 50 Year
  Sex: Male
  Weight: 91 kg

DRUGS (1)
  1. REMICADE [Suspect]
     Indication: CROHN^S DISEASE
     Route: 042
     Dates: start: 20130115

REACTIONS (1)
  - Blood iron decreased [Not Recovered/Not Resolved]
